FAERS Safety Report 25999890 (Version 1)
Quarter: 2025Q4

REPORT INFORMATION
  Report Type: Spontaneous
  Country: US (occurrence: None)
  Receive Date: 20251104
  Receipt Date: 20251104
  Transmission Date: 20260118
  Serious: Yes (Hospitalization)
  Sender: FDA-CTU
  Company Number: None

PATIENT
  Sex: Male

DRUGS (11)
  1. LENALIDOMIDE [Suspect]
     Active Substance: LENALIDOMIDE
     Indication: Plasma cell myeloma
     Dosage: OTHER FREQUENCY : TOTAL, DAILY ON DAYS 1-21 OF A 28-DAY CYCLE;?
     Route: 048
     Dates: start: 20240806
  2. ACYCLOVIR [Concomitant]
     Active Substance: ACYCLOVIR
  3. ASPIRIN [Concomitant]
     Active Substance: ASPIRIN
  4. BRIVIACT [Concomitant]
     Active Substance: BRIVARACETAM
  5. CALCIUM [Concomitant]
     Active Substance: CALCIUM
  6. DIAZEPAM SOL [Concomitant]
  7. DONEPEZIL [Concomitant]
     Active Substance: DONEPEZIL
  8. HYDROCORT CRE [Concomitant]
  9. LACOSAMIDE [Concomitant]
     Active Substance: LACOSAMIDE
  10. MIDAZOLAM POW [Concomitant]
  11. PEG 3350  POW [Concomitant]

REACTIONS (2)
  - Seizure [None]
  - Therapy interrupted [None]
